FAERS Safety Report 11533336 (Version 1)
Quarter: 2015Q3

REPORT INFORMATION
  Report Type: Spontaneous
  Country: US (occurrence: US)
  Receive Date: 20150921
  Receipt Date: 20150921
  Transmission Date: 20151125
  Serious: No
  Sender: FDA-Public Use
  Company Number: US-ALLERGAN-1505957US

PATIENT
  Sex: Female

DRUGS (5)
  1. LASTACAFT [Suspect]
     Active Substance: ALCAFTADINE
     Indication: EXOPHTHALMOS
     Dosage: UNK
     Dates: start: 20150317
  2. OMEPRAZOLE. [Concomitant]
     Active Substance: OMEPRAZOLE
     Indication: GASTROINTESTINAL DISORDER
     Dosage: UNK
     Route: 048
  3. LEXAPRO [Concomitant]
     Active Substance: ESCITALOPRAM OXALATE
     Dosage: 10 MG, QHS
     Route: 048
  4. OXYGEN. [Concomitant]
     Active Substance: OXYGEN
     Indication: OXYGEN SATURATION DECREASED
     Dosage: UNK UNK, QHS
  5. OXYGEN. [Concomitant]
     Active Substance: OXYGEN
     Indication: PAIN IN EXTREMITY

REACTIONS (3)
  - Headache [Recovering/Resolving]
  - Pain [Recovering/Resolving]
  - Off label use [Unknown]
